FAERS Safety Report 6878188-2 (Version None)
Quarter: 2010Q3

REPORT INFORMATION
  Report Type: 
  Country: None (occurrence: None)
  Receive Date: 20100728
  Receipt Date: 20100714
  Transmission Date: 20110219
  Serious: Yes (Other)
  Sender: FDA-Public Use
  Company Number: US-PFIZER INC-2010089034

PATIENT
  Age: 42 Year
  Sex: Female
  Weight: 97.52 kg

DRUGS (1)
  1. NEURONTIN [Suspect]
     Indication: TRIGEMINAL NEURALGIA
     Dosage: 100 MG, 1X/DAY
     Dates: start: 20070101, end: 20091005

REACTIONS (1)
  - CAESAREAN SECTION [None]
